FAERS Safety Report 18011187 (Version 1)
Quarter: 2020Q3

REPORT INFORMATION
  Report Type: Spontaneous
  Country: TR (occurrence: TR)
  Receive Date: 20200712
  Receipt Date: 20200712
  Transmission Date: 20201103
  Serious: Yes (Death, Other)
  Sender: FDA-Public Use
  Company Number: NVSC2020TR194643

PATIENT
  Age: 69 Year
  Sex: Female

DRUGS (4)
  1. PALBOCICLIB [Suspect]
     Active Substance: PALBOCICLIB
     Indication: BREAST CANCER
     Dosage: 125 MG, QD
     Route: 065
     Dates: start: 201901
  2. ZOMETA [Suspect]
     Active Substance: ZOLEDRONIC ACID
     Indication: BREAST CANCER
     Dosage: UNK
     Route: 065
  3. FULVESTRANT. [Suspect]
     Active Substance: FULVESTRANT
     Indication: BREAST CANCER
     Dosage: UNK
     Route: 065
  4. PALBOCICLIB [Suspect]
     Active Substance: PALBOCICLIB
     Dosage: 100 MG, QD
     Route: 065

REACTIONS (13)
  - Metastatic neoplasm [Unknown]
  - Neutropenia [Unknown]
  - Neoplasm progression [Fatal]
  - Breast cancer [Unknown]
  - Metastatic lymphoma [Unknown]
  - Pneumonia [Fatal]
  - Intraductal proliferative breast lesion [Unknown]
  - Bone lesion [Unknown]
  - Dyspnoea [Unknown]
  - Carcinoembryonic antigen increased [Unknown]
  - Respiratory failure [Fatal]
  - Malignant neoplasm progression [Unknown]
  - Asthenia [Unknown]
